FAERS Safety Report 17518721 (Version 1)
Quarter: 2020Q1

REPORT INFORMATION
  Report Type: Spontaneous
  Country: US (occurrence: US)
  Receive Date: 20200309
  Receipt Date: 20200309
  Transmission Date: 20200409
  Serious: Yes (Other)
  Sender: FDA-Public Use
  Company Number: US-OSMOTICA_PHARMACEUTICAL_US_LLC-POI0573202000009

PATIENT
  Age: 79 Year
  Sex: Male

DRUGS (1)
  1. OSMOLEX ER [Suspect]
     Active Substance: AMANTADINE
     Indication: PARKINSON^S DISEASE
     Dates: start: 202001

REACTIONS (9)
  - Hallucination [Unknown]
  - Hyperhidrosis [Unknown]
  - Arthralgia [Unknown]
  - Tremor [Unknown]
  - Insomnia [Unknown]
  - Palpitations [Unknown]
  - Muscular weakness [Unknown]
  - Respiratory rate increased [Unknown]
  - Confusional state [Unknown]

NARRATIVE: CASE EVENT DATE: 202001
